FAERS Safety Report 8899647 (Version 1)
Quarter: 2012Q4

REPORT INFORMATION
  Report Type: 
  Country: CA (occurrence: CA)
  Receive Date: 20121109
  Receipt Date: 20121109
  Transmission Date: 20130627
  Serious: Yes (Other)
  Sender: FDA-Public Use
  Company Number: CA-BAYER-2012-114769

PATIENT
  Age: 50 Year
  Sex: Female

DRUGS (1)
  1. MIRENA [Suspect]
     Indication: HEAVY PERIODS
     Dosage: 20 mcg/24hr, CONT
     Route: 015
     Dates: start: 2011

REACTIONS (9)
  - Thyroid cyst [None]
  - Thyroid neoplasm [None]
  - Amenorrhoea [None]
  - Weight increased [None]
  - Fatigue [None]
  - Pain [None]
  - Breast tenderness [None]
  - Arthralgia [None]
  - Headache [Not Recovered/Not Resolved]
